FAERS Safety Report 6605107-6 (Version None)
Quarter: 2010Q1

REPORT INFORMATION
  Report Type: 
  Country: None (occurrence: None)
  Receive Date: 20100226
  Receipt Date: 20100217
  Transmission Date: 20100710
  Serious: Yes (Hospitalization)
  Sender: FDA-Public Use
  Company Number: IT-ELI_LILLY_AND_COMPANY-IT201002004858

PATIENT
  Sex: Female

DRUGS (2)
  1. HUMALOG [Suspect]
     Indication: TYPE 2 DIABETES MELLITUS
     Dosage: 44 IU, DAILY (1/D)
     Route: 058
  2. LANTUS [Concomitant]
     Indication: TYPE 2 DIABETES MELLITUS
     Dosage: 18 IU, DAILY (1/D)
     Route: 058

REACTIONS (4)
  - BLOOD POTASSIUM DECREASED [None]
  - CHEST PAIN [None]
  - HYPOGLYCAEMIA [None]
  - PARAESTHESIA [None]
